FAERS Safety Report 9726482 (Version 4)
Quarter: 2014Q2

REPORT INFORMATION
  Report Type: Report from Study
  Country: ZW (occurrence: ZW)
  Receive Date: 20131203
  Receipt Date: 20140425
  Transmission Date: 20141212
  Serious: Yes (Hospitalization)
  Sender: FDA-Public Use
  Company Number: ZW-BRISTOL-MYERS SQUIBB COMPANY-19873157

PATIENT
  Age: 41 Year
  Sex: Male

DRUGS (8)
  1. EFAVIRENZ TABS [Suspect]
     Indication: HIV INFECTION
     Dosage: 24-OCT-2013 TO 30-OCT-2013
     Route: 048
     Dates: start: 20131024, end: 20131030
  2. RALTEGRAVIR [Suspect]
     Indication: HIV INFECTION
     Dosage: TABS
     Route: 048
     Dates: start: 20131024, end: 20131030
  3. TRUVADA [Suspect]
     Indication: HIV INFECTION
     Route: 065
     Dates: start: 20131024, end: 20131030
  4. DAPSONE [Suspect]
     Dosage: ONGOING,24OCT13
     Dates: start: 20131015
  5. ZITHROMAX [Concomitant]
     Indication: URINARY TRACT INFECTION
     Dates: start: 20131024, end: 20131027
  6. CIPROFLOXACIN [Concomitant]
     Indication: DIARRHOEA
     Dates: start: 20131015, end: 20131030
  7. CIPROFLOXACIN [Concomitant]
     Indication: PYREXIA
     Dates: start: 20131015, end: 20131030
  8. CIPROFLOXACIN [Concomitant]
     Indication: VOMITING
     Dates: start: 20131015, end: 20131030

REACTIONS (2)
  - Pulmonary tuberculosis [Recovering/Resolving]
  - Hepatitis [Not Recovered/Not Resolved]
